FAERS Safety Report 25861591 (Version 1)
Quarter: 2025Q3

REPORT INFORMATION
  Report Type: Spontaneous
  Country: JP (occurrence: JP)
  Receive Date: 20250930
  Receipt Date: 20250930
  Transmission Date: 20251021
  Serious: Yes (Other)
  Sender: SANOFI AVENTIS
  Company Number: JP-SAKK-02666655

PATIENT

DRUGS (1)
  1. RASBURICASE [Suspect]
     Active Substance: RASBURICASE
     Indication: Product used for unknown indication
     Route: 041

REACTIONS (1)
  - Tumour lysis syndrome [Unknown]
